FAERS Safety Report 8888250 (Version 1)
Quarter: 2012Q4

REPORT INFORMATION
  Report Type: 
  Country: US (occurrence: US)
  Receive Date: 20121106
  Receipt Date: 20121106
  Transmission Date: 20130627
  Serious: Yes (Hospitalization)
  Sender: FDA-Public Use
  Company Number: US-JNJFOC-20121015178

PATIENT
  Sex: Female
  Weight: 52.16 kg

DRUGS (2)
  1. FENTANYL [Suspect]
     Indication: BACK PAIN
     Dosage: one patch every 2 or 3 days.
     Route: 062
  2. KADIAN [Suspect]
     Indication: BACK PAIN
     Route: 048

REACTIONS (4)
  - Fall [Recovered/Resolved]
  - Cerebrovascular accident [Not Recovered/Not Resolved]
  - Muscle spasms [Recovered/Resolved]
  - Psychomotor hyperactivity [Recovered/Resolved]
